FAERS Safety Report 8491895-3 (Version None)
Quarter: 2012Q3

REPORT INFORMATION
  Report Type: 
  Country: None (occurrence: None)
  Receive Date: 20120706
  Receipt Date: 20111114
  Transmission Date: 20120928
  Serious: No
  Sender: FDA-Public Use
  Company Number: US-GLAXOSMITHKLINE-A0953022A

PATIENT
  Age: 70 Year
  Sex: Female

DRUGS (3)
  1. EYE DROPS [Concomitant]
  2. LEVOTHYROXINE SODIUM [Concomitant]
  3. FLOVENT [Suspect]
     Indication: CHRONIC OBSTRUCTIVE PULMONARY DISEASE
     Dosage: 2PUFF TWICE PER DAY
     Route: 055
     Dates: start: 20110527

REACTIONS (1)
  - CANDIDIASIS [None]
